FAERS Safety Report 15572310 (Version 2)
Quarter: 2018Q4

REPORT INFORMATION
  Report Type: Spontaneous
  Country: US (occurrence: ZA)
  Receive Date: 20181031
  Receipt Date: 20181121
  Transmission Date: 20190205
  Serious: Yes (Hospitalization, Other)
  Sender: FDA-Public Use
  Company Number: US-SUNOVION-2018SUN004270

PATIENT
  Sex: Male

DRUGS (1)
  1. GLYCOPYRROLATE. [Suspect]
     Active Substance: GLYCOPYRROLATE
     Indication: BRONCHIAL DISORDER
     Dosage: 50 UG, UNK
     Route: 055
     Dates: start: 201805

REACTIONS (2)
  - Lung neoplasm malignant [Unknown]
  - Lung infection [Unknown]
